FAERS Safety Report 6510558-4 (Version None)
Quarter: 2009Q4

REPORT INFORMATION
  Report Type: 
  Country: None (occurrence: None)
  Receive Date: 20091222
  Receipt Date: 20091027
  Transmission Date: 20100525
  Serious: No
  Sender: FDA-Public Use
  Company Number: US-ASTRAZENECA-2009SE22869

PATIENT
  Sex: Female
  Weight: 72.6 kg

DRUGS (5)
  1. CRESTOR [Suspect]
     Route: 048
     Dates: start: 20091022
  2. METOPROLOL TARTRATE [Concomitant]
  3. DIOVAN HCT [Concomitant]
  4. AMLODIPINE [Concomitant]
  5. BABY ASPIRIN [Concomitant]

REACTIONS (2)
  - NECK PAIN [None]
  - OEDEMA PERIPHERAL [None]
